FAERS Safety Report 10083406 (Version 1)
Quarter: 2014Q2

REPORT INFORMATION
  Report Type: Spontaneous
  Country: IT (occurrence: IT)
  Receive Date: 20140417
  Receipt Date: 20140417
  Transmission Date: 20141212
  Serious: Yes (Hospitalization)
  Sender: FDA-Public Use
  Company Number: IT-JNJFOC-20140408019

PATIENT
  Age: 57 Year
  Sex: Male

DRUGS (3)
  1. STELARA [Suspect]
     Indication: PSORIASIS
     Route: 058
     Dates: start: 20140328
  2. STELARA [Suspect]
     Indication: PSORIASIS
     Route: 058
     Dates: start: 20111216, end: 20140107
  3. ACITRETIN [Concomitant]
     Indication: PSORIASIS
     Route: 048

REACTIONS (3)
  - Wound dehiscence [Recovered/Resolved]
  - Wound infection [Recovered/Resolved]
  - Device related infection [Recovered/Resolved]
